FAERS Safety Report 17868210 (Version 1)
Quarter: 2020Q2

REPORT INFORMATION
  Report Type: Spontaneous
  Country: PK (occurrence: PK)
  Receive Date: 20200605
  Receipt Date: 20200605
  Transmission Date: 20200714
  Serious: Yes (Death)
  Sender: FDA-Public Use
  Company Number: PK-ROCHE-2613859

PATIENT
  Age: 52 Year
  Sex: Male

DRUGS (3)
  1. ACTEMRA [Suspect]
     Active Substance: TOCILIZUMAB
     Indication: COVID-19
     Dosage: Q12H, EVERY 12 HOURS. RECEIVED 2 DOSES OF ACTEMRA
     Route: 042
  2. ACTEMRA [Suspect]
     Active Substance: TOCILIZUMAB
     Indication: COUGH
  3. ACTEMRA [Suspect]
     Active Substance: TOCILIZUMAB
     Indication: PYREXIA

REACTIONS (3)
  - Death [Fatal]
  - Intentional product use issue [Fatal]
  - Off label use [Fatal]
